FAERS Safety Report 10979101 (Version 1)
Quarter: 2015Q1

REPORT INFORMATION
  Report Type: Spontaneous
  Country: US (occurrence: None)
  Receive Date: 20150226
  Receipt Date: 20150226
  Transmission Date: 20150721
  Serious: No
  Sender: FDA-Public Use
  Company Number: TPA2010A04385

PATIENT
  Age: 77 Year
  Sex: Male
  Weight: 78.9 kg

DRUGS (2)
  1. ULORIC [Suspect]
     Active Substance: FEBUXOSTAT
     Indication: GOUT
     Route: 048
     Dates: start: 20100715
  2. PROTONIX (PANTOPRAZOLE) [Concomitant]

REACTIONS (2)
  - Gout [None]
  - Condition aggravated [None]

NARRATIVE: CASE EVENT DATE: 20100715
